FAERS Safety Report 5411985-9 (Version None)
Quarter: 2007Q3

REPORT INFORMATION
  Report Type: 
  Country: None (occurrence: None)
  Receive Date: 20070808
  Receipt Date: 20070806
  Transmission Date: 20080115
  Serious: Yes (Hospitalization)
  Sender: FDA-Public Use
  Company Number: URSO-2007-174

PATIENT
  Age: 66 Year
  Sex: Female

DRUGS (7)
  1. URSO 250 [Suspect]
     Dosage: ORAL
     Route: 048
  2. LANSOPRAZOLE [Suspect]
     Indication: DUODENAL ULCER
     Dosage: 30 MG, ORAL
     Route: 048
     Dates: start: 20070601
  3. CARVEDILOL [Suspect]
  4. VIT K CAP [Suspect]
     Dosage: ORAL
  5. ALLOID G (SODIUM ALGINATE) [Suspect]
     Dosage: ORAL
     Route: 048
  6. GASCON (DIMETICONE) [Suspect]
     Dosage: ORAL
     Route: 048
  7. VANCOMYCIN [Suspect]
     Dosage: ORAL
     Route: 048

REACTIONS (2)
  - BLOOD BILIRUBIN INCREASED [None]
  - HEPATIC FUNCTION ABNORMAL [None]
